FAERS Safety Report 8336543-8 (Version None)
Quarter: 2012Q1

REPORT INFORMATION
  Report Type: 
  Country: None (occurrence: None)
  Receive Date: 20120329
  Receipt Date: 20100217
  Transmission Date: 20120608
  Serious: Yes (Other)
  Sender: FDA-Public Use
  Company Number: PHEH2010US02519

PATIENT
  Age: 72 Year
  Sex: Female

DRUGS (3)
  1. NAMENDA [Concomitant]
  2. EXELON [Suspect]
     Indication: DEMENTIA
     Dosage: 9.5 MG/24 HOURS/DAILY, TRANSDERMAL 9.5 MG, QOD
     Route: 062
     Dates: start: 20090417, end: 20090530
  3. ANTIHYPERTENSIVES (NO INGREDIENTS/SUBSTANCES) [Concomitant]

REACTIONS (4)
  - NAUSEA [None]
  - HALLUCINATION [None]
  - MOOD ALTERED [None]
  - DIARRHOEA [None]
